FAERS Safety Report 5173283-0 (Version None)
Quarter: 2006Q4

REPORT INFORMATION
  Report Type: 
  Country: None (occurrence: None)
  Receive Date: 20061214
  Receipt Date: 20061205
  Transmission Date: 20070319
  Serious: Yes (Hospitalization)
  Sender: FDA-Public Use
  Company Number: US-AMGEN-US202561

PATIENT
  Sex: Female
  Weight: 72.2 kg

DRUGS (10)
  1. ARANESP [Suspect]
     Indication: RENAL FAILURE CHRONIC
     Route: 058
     Dates: start: 20061120, end: 20061120
  2. ALTACE [Concomitant]
  3. HUMALOG [Concomitant]
  4. LANTUS [Concomitant]
  5. LASIX [Concomitant]
  6. LIPITOR [Concomitant]
  7. LOPID [Concomitant]
  8. LYRICA [Concomitant]
  9. TOPROL-XL [Concomitant]
  10. ZETIA [Concomitant]

REACTIONS (3)
  - CHEST PAIN [None]
  - DYSPNOEA [None]
  - ILLUSION [None]
